FAERS Safety Report 8167443-4 (Version None)
Quarter: 2012Q1

REPORT INFORMATION
  Report Type: 
  Country: None (occurrence: None)
  Receive Date: 20120103
  Receipt Date: 20111010
  Transmission Date: 20120608
  Serious: No
  Sender: FDA-Public Use
  Company Number: AE-2011-002190

PATIENT
  Sex: Male

DRUGS (3)
  1. PEGASYS [Concomitant]
  2. RIBAVIRIN [Concomitant]
  3. INCIVEK [Suspect]
     Dosage: 2250 MG  (750 MG, 1 IN 8 HR)
     Dates: start: 20110919

REACTIONS (3)
  - ARTHRALGIA [None]
  - NAUSEA [None]
  - DIARRHOEA [None]
